FAERS Safety Report 8812933 (Version 1)
Quarter: 2012Q4

REPORT INFORMATION
  Report Type: Report from Study
  Country: DE (occurrence: DE)
  Receive Date: 20120927
  Receipt Date: 20120927
  Transmission Date: 20130627
  Serious: Yes (Hospitalization)
  Sender: FDA-Public Use
  Company Number: DE-ROCHE-1133731

PATIENT
  Sex: Female

DRUGS (5)
  1. MABTHERA [Suspect]
     Indication: PRODUCT USED FOR UNKNOWN INDICATION
     Route: 065
     Dates: start: 20081022
  2. METHOTREXATE [Suspect]
     Indication: PRODUCT USED FOR UNKNOWN INDICATION
     Route: 065
     Dates: start: 200903, end: 200904
  3. METHOTREXATE [Suspect]
     Route: 065
     Dates: start: 201103
  4. LEFLUNOMIDE [Concomitant]
     Route: 065
     Dates: start: 200910, end: 201005
  5. PREDNISOLONE [Concomitant]
     Route: 065

REACTIONS (1)
  - Knee arthroplasty [Recovered/Resolved]
